FAERS Safety Report 4289997-0 (Version None)
Quarter: 2004Q1

REPORT INFORMATION
  Report Type: 
  Country: None (occurrence: None)
  Receive Date: 20040210
  Receipt Date: 20031209
  Transmission Date: 20041129
  Serious: Yes (Life-Threatening, Hospitalization)
  Sender: FDA-Public Use
  Company Number: WAES 0312USA01278

PATIENT
  Age: 63 Year
  Sex: Male

DRUGS (5)
  1. PEPCID [Suspect]
     Route: 048
     Dates: end: 20030405
  2. LOSARTAN POTASSIUM [Suspect]
     Route: 048
     Dates: end: 20030322
  3. LOXOPROFEN [Suspect]
     Route: 048
     Dates: end: 20030405
  4. PIPERACILLIN [Suspect]
     Indication: PROPHYLAXIS
     Route: 042
     Dates: end: 20030310
  5. VALSARTAN [Suspect]
     Route: 048
     Dates: start: 20030322, end: 20030411

REACTIONS (7)
  - ANAEMIA HAEMOLYTIC AUTOIMMUNE [None]
  - ANTI-ERYTHROPOIETIN ANTIBODY POSITIVE [None]
  - COOMBS TEST NEGATIVE [None]
  - EXTRASKELETAL OSSIFICATION [None]
  - HAEMOLYTIC ANAEMIA [None]
  - NORMOCHROMIC NORMOCYTIC ANAEMIA [None]
  - SHUNT OCCLUSION [None]
